FAERS Safety Report 13529847 (Version 1)
Quarter: 2017Q2

REPORT INFORMATION
  Report Type: Spontaneous
  Country: AL (occurrence: AL)
  Receive Date: 20170509
  Receipt Date: 20170509
  Transmission Date: 20170830
  Serious: Yes (Other)
  Sender: FDA-Public Use
  Company Number: AL-KALEO, INC-EPIN20170002

PATIENT
  Age: 18 Year
  Sex: Male

DRUGS (1)
  1. EPINEPHRINE. [Suspect]
     Active Substance: EPINEPHRINE
     Indication: HAEMOSTASIS
     Dosage: UNKNOWN, UNKNOWN,UNKNOWN

REACTIONS (5)
  - Haematoma [None]
  - Abdominal pain upper [None]
  - Duodenal obstruction [None]
  - Nausea [None]
  - Vomiting [None]
